FAERS Safety Report 6208438-7 (Version None)
Quarter: 2009Q2

REPORT INFORMATION
  Report Type: 
  Country: None (occurrence: None)
  Receive Date: 20090529
  Receipt Date: 20090519
  Transmission Date: 20091009
  Serious: Yes (Hospitalization, Other)
  Sender: FDA-Public Use
  Company Number: US-ELI_LILLY_AND_COMPANY-US200802004455

PATIENT
  Sex: Female
  Weight: 54.422 kg

DRUGS (9)
  1. ZYPREXA [Suspect]
     Dosage: 5 MG, UNK
     Dates: start: 20020107, end: 20050110
  2. ZYPREXA [Suspect]
     Dosage: 30 MG, UNK
  3. ZYPREXA [Suspect]
     Dosage: 15 MG, UNK
     Dates: start: 20060306, end: 20060406
  4. FLUOXETINE HCL [Concomitant]
     Dates: start: 20010518, end: 20010715
  5. FLUOXETINE HCL [Concomitant]
     Dates: start: 20010816, end: 20011109
  6. FLUOXETINE HCL [Concomitant]
     Dates: start: 20050221, end: 20050428
  7. DELTASONE [Concomitant]
     Dates: start: 20010623
  8. DELTASONE [Concomitant]
     Dates: start: 20030702, end: 20030712
  9. MICROZIDE [Concomitant]
     Dates: start: 20041112, end: 20050428

REACTIONS (9)
  - BLOOD CHOLESTEROL INCREASED [None]
  - BLOOD TRIGLYCERIDES INCREASED [None]
  - CARDIAC DISORDER [None]
  - CEREBROVASCULAR DISORDER [None]
  - DIABETES MELLITUS [None]
  - HYPERTENSION [None]
  - OBESITY [None]
  - OVERDOSE [None]
  - PANCREATITIS [None]
